FAERS Safety Report 8814224 (Version 1)
Quarter: 2012Q4

REPORT INFORMATION
  Report Type: Spontaneous
  Country: JP (occurrence: None)
  Receive Date: 20120925
  Receipt Date: 20120925
  Transmission Date: 20130627
  Serious: Yes (Hospitalization)
  Sender: FDA-Public Use
  Company Number: DSJ-2012-16873

PATIENT

DRUGS (2)
  1. OLMETEC [Suspect]
     Indication: HYPERTENSION
     Route: 048
  2. AZELNIDIPINE [Suspect]
     Indication: HYPERTENSION
     Route: 048

REACTIONS (1)
  - Pneumonia [None]
